FAERS Safety Report 19874272 (Version 1)
Quarter: 2021Q3

REPORT INFORMATION
  Report Type: Spontaneous
  Country: US (occurrence: US)
  Receive Date: 20210923
  Receipt Date: 20210923
  Transmission Date: 20211014
  Serious: Yes (Hospitalization, Other)
  Sender: FDA-Public Use
  Company Number: US-ASTRAZENECA-2021A733797

PATIENT
  Age: 48 Year
  Sex: Male

DRUGS (4)
  1. PREPRANDIALASPART INSULIN [Concomitant]
     Route: 065
  2. DAPAGLIOZIN [Suspect]
     Active Substance: DAPAGLIFLOZIN
     Indication: TYPE 2 DIABETES MELLITUS
     Route: 048
  3. GLIPIZIDE. [Concomitant]
     Active Substance: GLIPIZIDE
     Dosage: GLIPIZIDE (500 MG + 5 MG) DAILY,
     Route: 065
  4. METFORMIN [Concomitant]
     Active Substance: METFORMIN HYDROCHLORIDE
     Dosage: GLIPIZIDE (500 MG + 5 MG) DAILY,
     Route: 065

REACTIONS (3)
  - Weight decreased [Unknown]
  - Diabetic ketoacidosis [Unknown]
  - Polydipsia [Unknown]
